FAERS Safety Report 24776646 (Version 3)
Quarter: 2025Q1

REPORT INFORMATION
  Report Type: Spontaneous
  Country: JP (occurrence: JP)
  Receive Date: 20241226
  Receipt Date: 20250307
  Transmission Date: 20250408
  Serious: Yes (Other)
  Sender: EMD SERONO INC
  Company Number: JP-Merck Healthcare KGaA-2024067245

PATIENT
  Age: 30 Year
  Sex: Female
  Weight: 48 kg

DRUGS (12)
  1. OVIDREL [Suspect]
     Active Substance: CHORIOGONADOTROPIN ALFA
     Indication: Infertility
     Dates: start: 20241217, end: 20241217
  2. OVIDREL [Suspect]
     Active Substance: CHORIOGONADOTROPIN ALFA
     Indication: In vitro fertilisation
  3. GONAL-F [Suspect]
     Active Substance: FOLLITROPIN
     Indication: Infertility
  4. GONAL-F [Suspect]
     Active Substance: FOLLITROPIN
     Indication: In vitro fertilisation
     Dates: start: 20241211, end: 20241213
  5. GONAL-F [Suspect]
     Active Substance: FOLLITROPIN
  6. LETROZOLE [Suspect]
     Active Substance: LETROZOLE
     Indication: Infertility
     Dates: start: 20241210
  7. LETROZOLE [Suspect]
     Active Substance: LETROZOLE
     Indication: In vitro fertilisation
  8. LUTORAL [Suspect]
     Active Substance: CHLORMADINONE ACETATE
     Indication: Infertility
     Dates: start: 20241210
  9. LUTORAL [Suspect]
     Active Substance: CHLORMADINONE ACETATE
     Indication: In vitro fertilisation
  10. GONADOTROPHIN, CHORIONIC [Suspect]
     Active Substance: GONADOTROPHIN, CHORIONIC
     Indication: Infertility
  11. GONADOTROPHIN, CHORIONIC [Suspect]
     Active Substance: GONADOTROPHIN, CHORIONIC
     Indication: In vitro fertilisation
  12. GONADOTROPHIN, CHORIONIC [Suspect]
     Active Substance: GONADOTROPHIN, CHORIONIC
     Dates: start: 20241216, end: 20241217

REACTIONS (6)
  - Seizure [Recovered/Resolved]
  - Loss of consciousness [Recovered/Resolved]
  - Presyncope [Recovered/Resolved]
  - Fall [Recovered/Resolved]
  - Aichmophobia [Unknown]
  - Fear of injection [Unknown]

NARRATIVE: CASE EVENT DATE: 20241217
